FAERS Safety Report 4425334-6 (Version None)
Quarter: 2004Q3

REPORT INFORMATION
  Report Type: 
  Country: None (occurrence: None)
  Receive Date: 20040812
  Receipt Date: 20040812
  Transmission Date: 20050211
  Serious: Yes (Hospitalization)
  Sender: FDA-Public Use
  Company Number: None

PATIENT
  Age: 77 Year
  Sex: Female

DRUGS (20)
  1. GLEEVEC [Suspect]
     Indication: PANCREATIC CARCINOMA
     Dosage: PO
     Route: 048
     Dates: start: 20040625
  2. GEMCITABINE (COMMERCIAL) 700 MG/M2 [Suspect]
     Indication: PANCREATIC CARCINOMA
     Dosage: IV
     Route: 042
     Dates: start: 20040625
  3. MS CONTIN [Concomitant]
  4. PANCREASE [Concomitant]
  5. CLONIDINE HCL [Concomitant]
  6. PROTONIX [Concomitant]
  7. PROZAC [Concomitant]
  8. XANAX [Concomitant]
  9. ENALAPIL [Concomitant]
  10. PLAVIX [Concomitant]
  11. HYDROCHLOROTHIAZIDE [Concomitant]
  12. KDN [Concomitant]
  13. GLUCOTROL [Concomitant]
  14. VICODIN [Concomitant]
  15. TAPAZOLE [Concomitant]
  16. PAMINE FASTE [Concomitant]
  17. SENNA [Concomitant]
  18. CA [Concomitant]
  19. MEGACE [Concomitant]
  20. MIRALAX [Concomitant]

REACTIONS (6)
  - ANURIA [None]
  - BLOOD DISORDER [None]
  - COUGH [None]
  - DEHYDRATION [None]
  - NAUSEA [None]
  - VOMITING [None]
